FAERS Safety Report 6182802-7 (Version None)
Quarter: 2009Q2

REPORT INFORMATION
  Report Type: 
  Country: None (occurrence: None)
  Receive Date: 20090505
  Receipt Date: 20090421
  Transmission Date: 20091009
  Serious: Yes (Hospitalization)
  Sender: FDA-Public Use
  Company Number: 230215K09CAN

PATIENT
  Sex: Female

DRUGS (1)
  1. REBIF [Suspect]
     Indication: RELAPSING-REMITTING MULTIPLE SCLEROSIS
     Dosage: 44 MCG, 3 IN 1 WEEKS
     Dates: start: 20050927

REACTIONS (5)
  - CONDITION AGGRAVATED [None]
  - GASTROINTESTINAL INJURY [None]
  - MULTIPLE SCLEROSIS [None]
  - PANCREATITIS [None]
  - PROCEDURAL COMPLICATION [None]
